FAERS Safety Report 24267791 (Version 1)
Quarter: 2024Q3

REPORT INFORMATION
  Report Type: Other
  Country: US (occurrence: US)
  Receive Date: 20240830
  Receipt Date: 20240830
  Transmission Date: 20241017
  Serious: Yes (Disabling)
  Sender: AVA
  Company Number: US-AVA, Inc.-2161005

PATIENT
  Sex: Female

DRUGS (1)
  1. SCRUB-STAT [Suspect]
     Active Substance: CHLORHEXIDINE GLUCONATE
     Route: 061

REACTIONS (1)
  - Chest discomfort [Unknown]
